FAERS Safety Report 20603444 (Version 1)
Quarter: 2022Q1

REPORT INFORMATION
  Report Type: Spontaneous
  Country: US (occurrence: None)
  Receive Date: 20220316
  Receipt Date: 20220316
  Transmission Date: 20220423
  Serious: Yes (Hospitalization)
  Sender: FDA-Public Use
  Company Number: None

PATIENT
  Sex: Female
  Weight: 76.2 kg

DRUGS (5)
  1. CYCLOPHOSPHAMIDE [Suspect]
     Active Substance: CYCLOPHOSPHAMIDE
     Dates: end: 20220304
  2. DOXORUBICIN HYDROCHLORIDE [Suspect]
     Active Substance: DOXORUBICIN HYDROCHLORIDE
     Dates: end: 20220228
  3. ETOPOSIDE [Suspect]
     Active Substance: ETOPOSIDE
     Dates: end: 20220228
  4. VINCRISTINE SULFATE [Suspect]
     Active Substance: VINCRISTINE SULFATE
     Dates: end: 20220228
  5. PREDNISONE [Suspect]
     Active Substance: PREDNISONE
     Dates: end: 20220228

REACTIONS (3)
  - Febrile neutropenia [None]
  - Thrombocytopenia [None]
  - Anaemia [None]

NARRATIVE: CASE EVENT DATE: 20220308
